FAERS Safety Report 15540310 (Version 2)
Quarter: 2018Q4

REPORT INFORMATION
  Report Type: Spontaneous
  Country: US (occurrence: US)
  Receive Date: 20181023
  Receipt Date: 20181211
  Transmission Date: 20190205
  Serious: No
  Sender: FDA-Public Use
  Company Number: US-PFIZER INC-2018421034

PATIENT
  Age: 25 Year
  Sex: Female
  Weight: 86.17 kg

DRUGS (7)
  1. LYRICA [Suspect]
     Active Substance: PREGABALIN
     Indication: FIBROMYALGIA
     Dosage: 300 MG, 2X/DAY (PRESCRIBED IN THE IN MORNING AND IN THE NIGHT)/(Q12H)
     Route: 048
     Dates: start: 20170329
  2. OFLOXACIN. [Concomitant]
     Active Substance: OFLOXACIN
     Indication: OTITIS EXTERNA
     Dosage: 10 METRIC DROP, 2X/DAY (BID) TO AFFECTED EAR
     Dates: start: 20180620
  3. QUETIAPINE FUMARATE. [Concomitant]
     Active Substance: QUETIAPINE FUMARATE
     Indication: DEPRESSION
     Dosage: 1/2 TO 1 TABLET, 1X/DAY (QHS)
     Dates: start: 20181015
  4. AUGMENTIN [AMOXICILLIN;CLAVULANIC ACID] [Concomitant]
     Indication: PAIN
     Dosage: 1 DF, 2X/DAY (1 TABLET BID)
     Dates: start: 20181015
  5. LYRICA [Suspect]
     Active Substance: PREGABALIN
     Indication: PSORIATIC ARTHROPATHY
  6. OXYCODONE [Concomitant]
     Active Substance: OXYCODONE
     Indication: CROHN^S DISEASE
     Dosage: 1-2 TABLETS, AS NEEDED (Q6H PRN)
     Dates: start: 20181015
  7. VENTOLIN [Concomitant]
     Active Substance: ALBUTEROL SULFATE
     Indication: ASTHMA
     Dosage: UNK

REACTIONS (4)
  - Malaise [Unknown]
  - Back pain [Unknown]
  - Product use issue [Unknown]
  - Neck pain [Unknown]

NARRATIVE: CASE EVENT DATE: 20170619
